FAERS Safety Report 8334840-3 (Version None)
Quarter: 2012Q2

REPORT INFORMATION
  Report Type: 
  Country: None (occurrence: None)
  Receive Date: 20120503
  Receipt Date: 20120424
  Transmission Date: 20120825
  Serious: Yes (Death, Life-Threatening, Hospitalization, Other)
  Sender: FDA-Public Use
  Company Number: DE-BAYER-2012-038249

PATIENT
  Age: 29 Year
  Sex: Female
  Weight: 70 kg

DRUGS (1)
  1. YASMIN [Suspect]
     Indication: CONTRACEPTION
     Dosage: UNK
     Dates: start: 20120322, end: 20120411

REACTIONS (11)
  - PULMONARY EMBOLISM [None]
  - CIRCULATORY COLLAPSE [None]
  - RIGHT VENTRICULAR FAILURE [None]
  - RADICULAR PAIN [None]
  - STERNAL FRACTURE [None]
  - RIB FRACTURE [None]
  - DEEP VEIN THROMBOSIS [None]
  - HYPOXIC-ISCHAEMIC ENCEPHALOPATHY [None]
  - BRAIN INJURY [None]
  - POST-ANOXIC MYOCLONUS [None]
  - COAGULOPATHY [None]
